FAERS Safety Report 12746201 (Version 1)
Quarter: 2016Q3

REPORT INFORMATION
  Report Type: Spontaneous
  Country: CH (occurrence: CH)
  Receive Date: 20160915
  Receipt Date: 20160915
  Transmission Date: 20161109
  Serious: Yes (Other)
  Sender: FDA-Public Use
  Company Number: CH-AMGEN-CHESP2016121509

PATIENT
  Age: 61 Year
  Sex: Female
  Weight: 53.6 kg

DRUGS (2)
  1. PROLIA [Suspect]
     Active Substance: DENOSUMAB
     Indication: OSTEOPOROSIS
     Dosage: 60 MG, Q6MO
     Route: 058
     Dates: start: 201111, end: 201411
  2. VITAMIN D3 STREULI [Concomitant]
     Indication: OSTEOPOROSIS
     Dosage: 2.5 ML, QWK
     Route: 048

REACTIONS (2)
  - Bone density decreased [Not Recovered/Not Resolved]
  - Rebound effect [Not Recovered/Not Resolved]

NARRATIVE: CASE EVENT DATE: 2015
